FAERS Safety Report 5825855-5 (Version None)
Quarter: 2008Q3

REPORT INFORMATION
  Report Type: 
  Country: None (occurrence: None)
  Receive Date: 20080729
  Receipt Date: 20080728
  Transmission Date: 20090109
  Serious: Yes (Hospitalization)
  Sender: FDA-Public Use
  Company Number: FR-BRISTOL-MYERS SQUIBB COMPANY-13674403

PATIENT
  Age: 64 Year
  Sex: Female

DRUGS (10)
  1. COUMADIN [Suspect]
     Route: 048
  2. ATACAND [Suspect]
  3. MIMPARA [Suspect]
  4. KAYEXALATE [Suspect]
  5. ZOLPIDEM [Suspect]
  6. OROCAL [Suspect]
  7. LEXOMIL [Concomitant]
  8. ORACILLINE [Concomitant]
  9. OMEPRAZOLE [Concomitant]
  10. VENOFER [Concomitant]

REACTIONS (1)
  - INTRAVASCULAR HAEMOLYSIS [None]
